FAERS Safety Report 5850263-0 (Version None)
Quarter: 2008Q3

REPORT INFORMATION
  Report Type: 
  Country: None (occurrence: None)
  Receive Date: 20080819
  Receipt Date: 20080811
  Transmission Date: 20090109
  Serious: Yes (Other)
  Sender: FDA-Public Use
  Company Number: PHHY2008BR18122

PATIENT
  Age: 27 Year
  Sex: Male
  Weight: 97 kg

DRUGS (3)
  1. CODATEN [Suspect]
     Indication: INTERVERTEBRAL DISC PROTRUSION
     Dosage: 100 MG IN A DAY (2 TABLETS)
     Route: 048
     Dates: start: 20080801
  2. ATENOLOL AND CHLORTHALIDONE [Concomitant]
     Dosage: (50/12.5) ; 1 TABLET/ PER DAY
     Route: 048
  3. TRAMAL [Concomitant]

REACTIONS (3)
  - SKIN EXFOLIATION [None]
  - SWELLING FACE [None]
  - THROAT TIGHTNESS [None]
